FAERS Safety Report 7278161-9 (Version None)
Quarter: 2011Q1

REPORT INFORMATION
  Report Type: 
  Country: None (occurrence: None)
  Receive Date: 20110207
  Receipt Date: 20110201
  Transmission Date: 20110831
  Serious: Yes (Death)
  Sender: FDA-Public Use
  Company Number: A0911162A

PATIENT
  Age: 52 Year
  Sex: Male

DRUGS (7)
  1. ADVAIR [Suspect]
     Indication: CHRONIC OBSTRUCTIVE PULMONARY DISEASE
     Route: 055
     Dates: start: 20101201
  2. NAUSEA MEDICATION (UNKNOWN) [Concomitant]
  3. PAIN MEDICATION [Concomitant]
  4. VENTOLIN [Suspect]
     Indication: CHRONIC OBSTRUCTIVE PULMONARY DISEASE
     Route: 055
  5. CHEMOTHERAPY [Concomitant]
  6. FOLIC ACID [Concomitant]
  7. SPIRIVA [Concomitant]

REACTIONS (1)
  - LUNG NEOPLASM MALIGNANT [None]
